FAERS Safety Report 9319715 (Version 1)
Quarter: 2013Q2

REPORT INFORMATION
  Report Type: Spontaneous
  Country: US (occurrence: None)
  Receive Date: 20130529
  Receipt Date: 20130529
  Transmission Date: 20140414
  Serious: Yes (Other)
  Sender: FDA-Public Use
  Company Number: None

PATIENT
  Age: 15 Year
  Sex: Male
  Weight: 72.58 kg

DRUGS (1)
  1. HYDROXEUREA [Suspect]
     Indication: SICKLE CELL ANAEMIA
     Dosage: 1000 MG, 1, PO
     Route: 048
     Dates: start: 20110601, end: 20130523

REACTIONS (5)
  - Fatigue [None]
  - Night sweats [None]
  - Rash [None]
  - Skin odour abnormal [None]
  - Skin discolouration [None]
